FAERS Safety Report 6230464-2 (Version None)
Quarter: 2009Q2

REPORT INFORMATION
  Report Type: 
  Country: None (occurrence: None)
  Receive Date: 20090611
  Receipt Date: 20090605
  Transmission Date: 20091009
  Serious: Yes (Other)
  Sender: FDA-Public Use
  Company Number: 1000006012

PATIENT
  Age: 53 Year
  Sex: Female

DRUGS (10)
  1. LEXAPRO [Suspect]
     Indication: DEPRESSION
     Dosage: SEE IMAGE
     Route: 048
     Dates: start: 20020101, end: 20090301
  2. LEXAPRO [Suspect]
     Indication: DEPRESSION
     Dosage: SEE IMAGE
     Route: 048
     Dates: start: 20090301, end: 20090301
  3. LEXAPRO [Suspect]
     Indication: DEPRESSION
     Dosage: SEE IMAGE
     Route: 048
     Dates: start: 20090301, end: 20090401
  4. LEXAPRO [Suspect]
     Indication: DEPRESSION
     Dosage: SEE IMAGE
     Route: 048
     Dates: start: 20090527
  5. AMARYL [Concomitant]
  6. METOPROLOL SUCCINATE [Concomitant]
  7. NORVASC [Concomitant]
  8. CRESTOR [Concomitant]
  9. LISINOPRIL [Concomitant]
  10. ADVIL [Concomitant]

REACTIONS (10)
  - ANXIETY [None]
  - CORONARY ARTERY DISEASE [None]
  - CORONARY ARTERY OCCLUSION [None]
  - CRYING [None]
  - IRRITABILITY [None]
  - NERVOUSNESS [None]
  - OVERDOSE [None]
  - PAIN IN EXTREMITY [None]
  - SENSORY DISTURBANCE [None]
  - THERAPY CESSATION [None]
